FAERS Safety Report 8300936-5 (Version None)
Quarter: 2012Q1

REPORT INFORMATION
  Report Type: 
  Country: None (occurrence: None)
  Receive Date: 20120326
  Receipt Date: 20111209
  Transmission Date: 20120608
  Serious: Yes (Other)
  Sender: FDA-Public Use
  Company Number: PHHY2011US64203

PATIENT
  Sex: Female

DRUGS (2)
  1. TASIGNA [Suspect]
     Indication: CHROMOSOME ANALYSIS ABNORMAL
     Dosage: 300 MG, BID, ORAL ; 300 MG, QD, ORAL
     Route: 048
     Dates: start: 20110704
  2. TASIGNA [Suspect]
     Indication: CHRONIC MYELOID LEUKAEMIA
     Dosage: 300 MG, BID, ORAL ; 300 MG, QD, ORAL
     Route: 048
     Dates: start: 20110704

REACTIONS (3)
  - BLOOD BILIRUBIN INCREASED [None]
  - LIPASE INCREASED [None]
  - AMYLASE INCREASED [None]
